FAERS Safety Report 11968864 (Version 2)
Quarter: 2016Q1

REPORT INFORMATION
  Report Type: Spontaneous
  Country: GB (occurrence: GB)
  Receive Date: 20160128
  Receipt Date: 20160128
  Transmission Date: 20160526
  Serious: Yes (Death, Hospitalization)
  Sender: FDA-Public Use
  Company Number: GB-ACCORD-037296

PATIENT
  Age: 65 Year
  Sex: Male

DRUGS (2)
  1. CLOPIDOGREL [Suspect]
     Active Substance: CLOPIDOGREL BISULFATE
     Indication: CORONARY ARTERIAL STENT INSERTION
  2. ACETYLSALICYLIC ACID [Suspect]
     Active Substance: ASPIRIN
     Indication: CORONARY ARTERIAL STENT INSERTION

REACTIONS (7)
  - Pulmonary haematoma [Unknown]
  - Neutrophilia [Unknown]
  - Infective exacerbation of chronic obstructive airways disease [Unknown]
  - Hypotension [Recovered/Resolved]
  - Respiratory tract infection [Fatal]
  - Anaemia [Unknown]
  - Tachycardia [Recovered/Resolved]
